FAERS Safety Report 15962106 (Version 1)
Quarter: 2019Q1

REPORT INFORMATION
  Report Type: Report from Study
  Country: None (occurrence: AT)
  Receive Date: 20190214
  Receipt Date: 20190214
  Transmission Date: 20190417
  Serious: Yes (Hospitalization)
  Sender: FDA-Public Use
  Company Number: AT-ABBVIE-19S-009-2631299-00

PATIENT
  Age: 74 Year
  Sex: Female

DRUGS (2)
  1. DUODOPA [Suspect]
     Active Substance: CARBIDOPA\LEVODOPA
     Indication: PARKINSON^S DISEASE
     Dosage: 16H THERAPY: MD: 6ML CR DAYTIME: 3,6ML/H ED: 1,0ML
     Route: 050
     Dates: start: 20111005, end: 20190116
  2. DUODOPA [Suspect]
     Active Substance: CARBIDOPA\LEVODOPA
     Dosage: 16H THERAPY: MD: 6ML CR DAYTIME: 3.6ML/H ED: 1.0ML
     Route: 050
     Dates: start: 20190116

REACTIONS (4)
  - Pneumonia [Recovering/Resolving]
  - Chills [Recovered/Resolved]
  - Drug effect incomplete [Recovered/Resolved]
  - Freezing phenomenon [Unknown]

NARRATIVE: CASE EVENT DATE: 20190116
